FAERS Safety Report 8409317-7 (Version None)
Quarter: 2012Q2

REPORT INFORMATION
  Report Type: 
  Country: None (occurrence: None)
  Receive Date: 20120605
  Receipt Date: 20120526
  Transmission Date: 20120825
  Serious: Yes (Hospitalization)
  Sender: FDA-Public Use
  Company Number: US-BIOGENIDEC-2012BI019159

PATIENT
  Sex: Female
  Weight: 86 kg

DRUGS (5)
  1. AMLODIPINE [Concomitant]
     Route: 048
  2. SIMVASTATIN [Concomitant]
     Route: 048
  3. AVONEX [Suspect]
     Indication: MULTIPLE SCLEROSIS
     Route: 030
     Dates: start: 20120301
  4. DETROL LA [Concomitant]
     Route: 048
  5. LOSARTAN [Concomitant]
     Route: 048

REACTIONS (3)
  - DYSARTHRIA [None]
  - BASAL GANGLIA INFARCTION [None]
  - HEMIPARESIS [None]
